FAERS Safety Report 16965617 (Version 2)
Quarter: 2019Q4

REPORT INFORMATION
  Report Type: Report from Study
  Country: US (occurrence: US)
  Receive Date: 20191028
  Receipt Date: 20191108
  Transmission Date: 20200122
  Serious: Yes (Life-Threatening, Hospitalization)
  Sender: FDA-Public Use
  Company Number: US-BAYER-2019-192523

PATIENT

DRUGS (2)
  1. ASPIRIN. [Suspect]
     Active Substance: ASPIRIN
     Indication: ANTICOAGULANT THERAPY
  2. ASPIRIN. [Suspect]
     Active Substance: ASPIRIN
     Indication: CHEST PAIN

REACTIONS (2)
  - Flank pain [None]
  - Renal haemorrhage [Recovering/Resolving]
